FAERS Safety Report 4926320-X (Version None)
Quarter: 2006Q1

REPORT INFORMATION
  Report Type: 
  Country: None (occurrence: None)
  Receive Date: 20060228
  Receipt Date: 20051028
  Transmission Date: 20060701
  Serious: No
  Sender: FDA-Public Use
  Company Number: US-GLAXOSMITHKLINE-A0580086A

PATIENT
  Age: 27 Year
  Sex: Female
  Weight: 67.3 kg

DRUGS (5)
  1. LAMICTAL [Suspect]
     Indication: EPILEPSY
     Dosage: 100MG TWICE PER DAY
     Route: 048
     Dates: start: 20050501
  2. UNKNOWN MEDICATION [Concomitant]
     Dosage: 100MG TWICE PER DAY
     Route: 048
     Dates: start: 20050101
  3. LORTAB [Concomitant]
     Indication: PAIN
     Route: 048
     Dates: start: 20041001
  4. LAC-HYDRIN [Concomitant]
     Dosage: 1APP AS REQUIRED
     Route: 061
     Dates: start: 20050901
  5. CHROMAGEN [Concomitant]
     Route: 065
     Dates: start: 20050601

REACTIONS (1)
  - MYOCLONUS [None]
